FAERS Safety Report 26006780 (Version 1)
Quarter: 2025Q4

REPORT INFORMATION
  Report Type: Spontaneous
  Country: US (occurrence: None)
  Receive Date: 20251105
  Receipt Date: 20251105
  Transmission Date: 20260118
  Serious: Yes (Other)
  Sender: FDA-CTU
  Company Number: None

PATIENT
  Age: 47 Year
  Sex: Female

DRUGS (1)
  1. JAKAFI [Suspect]
     Active Substance: RUXOLITINIB
     Dosage: 20 MG TWICE A DAY ORAL ?
     Route: 048
     Dates: start: 20250905

REACTIONS (1)
  - Localised infection [None]

NARRATIVE: CASE EVENT DATE: 20251105
